FAERS Safety Report 16239783 (Version 1)
Quarter: 2019Q2

REPORT INFORMATION
  Report Type: Spontaneous
  Country: BR (occurrence: BR)
  Receive Date: 20190425
  Receipt Date: 20190425
  Transmission Date: 20190711
  Serious: Yes (Hospitalization)
  Sender: FDA-Public Use
  Company Number: BR-ASTRAZENECA-2019SE60547

PATIENT

DRUGS (1)
  1. FASENRA [Suspect]
     Active Substance: BENRALIZUMAB
     Route: 058

REACTIONS (3)
  - Viral infection [Unknown]
  - Drug ineffective [Unknown]
  - Depression [Unknown]

NARRATIVE: CASE EVENT DATE: 2019
